FAERS Safety Report 23873890 (Version 1)
Quarter: 2024Q2

REPORT INFORMATION
  Report Type: Spontaneous
  Country: US (occurrence: US)
  Receive Date: 20240520
  Receipt Date: 20240520
  Transmission Date: 20240716
  Serious: Yes (Other)
  Sender: FDA-Public Use
  Company Number: US-MYLANLABS-2024M1044272

PATIENT
  Sex: Female

DRUGS (1)
  1. PREGABALIN [Suspect]
     Active Substance: PREGABALIN
     Indication: Product used for unknown indication
     Dosage: 25 MILLIGRAM (2WEEKS AND OFF OF IT FOR 1 WEEK)
     Route: 065

REACTIONS (4)
  - Suicidal ideation [Unknown]
  - Near death experience [Unknown]
  - Neuralgia [Unknown]
  - Pain [Unknown]
